FAERS Safety Report 7571512-7 (Version None)
Quarter: 2011Q2

REPORT INFORMATION
  Report Type: 
  Country: None (occurrence: None)
  Receive Date: 20110624
  Receipt Date: 20110613
  Transmission Date: 20111010
  Serious: Yes (Other)
  Sender: FDA-Public Use
  Company Number: CA-JNJFOC-20110607560

PATIENT
  Sex: Female
  Weight: 54 kg

DRUGS (6)
  1. SERTRALINE HYDROCHLORIDE [Concomitant]
  2. BUDESONIDE [Concomitant]
  3. REMICADE [Suspect]
     Indication: CROHN'S DISEASE
     Route: 042
     Dates: start: 20110101
  4. DEXILANT [Concomitant]
  5. EMTEC 30 [Concomitant]
  6. CORTIFOAM [Concomitant]

REACTIONS (1)
  - ABDOMINAL ADHESIONS [None]
